FAERS Safety Report 6620518-0 (Version None)
Quarter: 2010Q1

REPORT INFORMATION
  Report Type: 
  Country: None (occurrence: None)
  Receive Date: 20100308
  Receipt Date: 20100308
  Transmission Date: 20100710
  Serious: Yes (Other)
  Sender: FDA-Public Use
  Company Number: None

PATIENT
  Age: 44 Year
  Sex: Female
  Weight: 110.6777 kg

DRUGS (1)
  1. CYMBALTA [Suspect]
     Indication: MAJOR DEPRESSION
     Dosage: 60MG Q.A.M. PO
     Route: 048
     Dates: start: 20071015, end: 20100210

REACTIONS (9)
  - AGGRESSION [None]
  - ALOPECIA [None]
  - AMNESIA [None]
  - BACK PAIN [None]
  - GALLBLADDER PAIN [None]
  - HEPATIC PAIN [None]
  - JAUNDICE [None]
  - LETHARGY [None]
  - WEIGHT INCREASED [None]
